FAERS Safety Report 24545357 (Version 1)
Quarter: 2024Q4

REPORT INFORMATION
  Report Type: Spontaneous
  Country: US (occurrence: None)
  Receive Date: 20241023
  Receipt Date: 20241023
  Transmission Date: 20250115
  Serious: Yes (Other)
  Sender: Public
  Company Number: None

PATIENT
  Age: 4 Week
  Sex: Male
  Weight: 4.5 kg

DRUGS (1)
  1. NIRSEVIMAB [Suspect]
     Active Substance: NIRSEVIMAB
     Indication: Antiviral prophylaxis
     Dosage: OTHER FREQUENCY : ONCE;?
     Route: 030
     Dates: start: 20241018, end: 20241018

REACTIONS (1)
  - Pyrexia [None]

NARRATIVE: CASE EVENT DATE: 20241019
